FAERS Safety Report 5010684-5 (Version None)
Quarter: 2006Q2

REPORT INFORMATION
  Report Type: 
  Country: None (occurrence: None)
  Receive Date: 20060523
  Receipt Date: 20060510
  Transmission Date: 20061013
  Serious: Yes (Hospitalization, Other)
  Sender: FDA-Public Use
  Company Number: 2006060275

PATIENT
  Age: 30 Year
  Sex: Male

DRUGS (3)
  1. GEODON [Suspect]
     Indication: ILL-DEFINED DISORDER
     Dosage: 160 MG (80 MG, 2 IN 1 D); 20 MG (20 MG, ONCE, INTRAMUSCULAR
     Route: 030
  2. COGENTIN [Concomitant]
  3. ATIVAN [Concomitant]

REACTIONS (2)
  - FALL [None]
  - SYNCOPE [None]
